FAERS Safety Report 10271313 (Version 3)
Quarter: 2014Q3

REPORT INFORMATION
  Report Type: Report from Study
  Country: DE (occurrence: DE)
  Receive Date: 20140701
  Receipt Date: 20140908
  Transmission Date: 20150326
  Serious: Yes (Hospitalization)
  Sender: FDA-Public Use
  Company Number: DE-BAYER-2013-149261

PATIENT
  Sex: Male
  Weight: 90 kg

DRUGS (12)
  1. CALCIGEN D [Concomitant]
     Active Substance: CALCIUM CARBONATE\CHOLECALCIFEROL
     Indication: PROSTATE CANCER
     Dosage: 600 MG, QD
     Route: 048
     Dates: start: 201201
  2. ZOFRAN [Concomitant]
     Active Substance: ONDANSETRON HYDROCHLORIDE
     Indication: URINARY TRACT OBSTRUCTION
     Dosage: 4 MG, QD
     Route: 048
     Dates: start: 20140411, end: 20140411
  3. HYDROMORPHONE [Concomitant]
     Active Substance: HYDROMORPHONE
     Indication: CANCER PAIN
     Dosage: 20 MG, BID
     Route: 048
     Dates: start: 20131125
  4. CEFUROXIM [Concomitant]
     Active Substance: CEFUROXIME
     Indication: URINARY TRACT OBSTRUCTION
     Dosage: 250 MG, QD
     Route: 048
     Dates: start: 20140412
  5. LORAZEPAM. [Concomitant]
     Active Substance: LORAZEPAM
     Indication: URINARY TRACT OBSTRUCTION
     Dosage: 1.0 MG, QD
     Route: 048
     Dates: start: 20140411, end: 20140411
  6. RADIUM-223 DICHLORIDE [Suspect]
     Active Substance: RADIUM RA-223 DICHLORIDE
     Indication: METASTASES TO BONE
  7. MCP HEXAL [Concomitant]
     Active Substance: METOCLOPRAMIDE HYDROCHLORIDE
     Indication: URINARY TRACT OBSTRUCTION
     Dosage: 10 MG, QD
     Route: 042
     Dates: start: 20140412, end: 20140412
  8. CLEXANE [Concomitant]
     Active Substance: ENOXAPARIN SODIUM
     Indication: URINARY TRACT OBSTRUCTION
     Dosage: 40 MG, QD
     Route: 058
     Dates: start: 20140412, end: 20140412
  9. PANTOZOL [Concomitant]
     Active Substance: PANTOPRAZOLE SODIUM
     Dosage: 40 MG, QD
     Route: 048
     Dates: start: 20140403
  10. RADIUM-223 DICHLORIDE [Suspect]
     Active Substance: RADIUM RA-223 DICHLORIDE
     Indication: HORMONE-REFRACTORY PROSTATE CANCER
     Dosage: 6.92 ML
     Route: 042
     Dates: start: 20131126, end: 20131126
  11. PASPERTIN [Concomitant]
     Active Substance: METOCLOPRAMIDE HYDROCHLORIDE
     Indication: VOMITING
     Dosage: MCP
     Route: 048
     Dates: start: 20131127, end: 20131128
  12. XIMOVAN [Concomitant]
     Indication: URINARY TRACT OBSTRUCTION
     Dosage: 7.5 MG, QD
     Route: 048
     Dates: start: 20140412, end: 20140412

REACTIONS (1)
  - Migraine [Recovered/Resolved]

NARRATIVE: CASE EVENT DATE: 20131126
